FAERS Safety Report 26125988 (Version 1)
Quarter: 2025Q4

REPORT INFORMATION
  Report Type: Spontaneous
  Country: US (occurrence: None)
  Receive Date: 20251204
  Receipt Date: 20251204
  Transmission Date: 20260119
  Serious: No
  Sender: FDA-CTU
  Company Number: None

PATIENT
  Age: 60 Year
  Sex: Male
  Weight: 103.95 kg

DRUGS (1)
  1. REPATHA [Suspect]
     Active Substance: EVOLOCUMAB
     Dosage: 140 MG EVERY 2 WEEKS SUABCUTANEOUS?
     Route: 058

REACTIONS (1)
  - Visual impairment [None]

NARRATIVE: CASE EVENT DATE: 20251204
